FAERS Safety Report 17242051 (Version 3)
Quarter: 2020Q2

REPORT INFORMATION
  Report Type: Report from Study
  Country: CO (occurrence: CO)
  Receive Date: 20200107
  Receipt Date: 20200517
  Transmission Date: 20200713
  Serious: Yes (Death, Hospitalization)
  Sender: FDA-Public Use
  Company Number: NVSC2019CO075228

PATIENT
  Age: 47 Year
  Sex: Female
  Weight: 50 kg

DRUGS (2)
  1. KISQALI [Suspect]
     Active Substance: RIBOCICLIB
     Dosage: 600 MG, QD
     Route: 048
     Dates: start: 20191225
  2. KISQALI [Suspect]
     Active Substance: RIBOCICLIB
     Indication: BREAST CANCER METASTATIC
     Dosage: 600 MG, QD
     Route: 048
     Dates: start: 201911, end: 20191220

REACTIONS (6)
  - Death [Fatal]
  - Femur fracture [Recovered/Resolved]
  - Pain in extremity [Unknown]
  - Dyskinesia [Recovering/Resolving]
  - Haemoglobin decreased [Recovering/Resolving]
  - Decreased immune responsiveness [Recovering/Resolving]

NARRATIVE: CASE EVENT DATE: 20191212
